FAERS Safety Report 8164844-5 (Version None)
Quarter: 2012Q1

REPORT INFORMATION
  Report Type: 
  Country: None (occurrence: None)
  Receive Date: 20120227
  Receipt Date: 20120216
  Transmission Date: 20120608
  Serious: No
  Sender: FDA-Public Use
  Company Number: US-BIOGENIDEC-2012BI006141

PATIENT
  Age: 51 Year
  Sex: Male

DRUGS (2)
  1. TYSABRI [Suspect]
     Indication: MULTIPLE SCLEROSIS
     Route: 042
     Dates: start: 20080516, end: 20090121
  2. TYSABRI [Suspect]
     Route: 042
     Dates: start: 20100526, end: 20101019

REACTIONS (3)
  - GAIT DISTURBANCE [None]
  - VISUAL IMPAIRMENT [None]
  - READING DISORDER [None]
